FAERS Safety Report 13494490 (Version 2)
Quarter: 2017Q2

REPORT INFORMATION
  Report Type: Spontaneous
  Country: IN (occurrence: IN)
  Receive Date: 20170428
  Receipt Date: 20170530
  Transmission Date: 20170830
  Serious: Yes (Hospitalization, Other)
  Sender: FDA-Public Use
  Company Number: IN-ACCORD-050818

PATIENT
  Age: 43 Year
  Sex: Female
  Weight: 54 kg

DRUGS (10)
  1. TACROLIMUS. [Suspect]
     Active Substance: TACROLIMUS
     Indication: IMMUNOSUPPRESSION
  2. FRUSEMIDE [Concomitant]
     Active Substance: FUROSEMIDE
     Indication: POLYURIA
     Dosage: ALSO RECEIVED 20 MG INJECTION TWICE DAILY I.V.
  3. PREDNISOLONE. [Suspect]
     Active Substance: PREDNISOLONE
     Indication: IMMUNOSUPPRESSION
  4. MYCOPHENOLIC ACID. [Suspect]
     Active Substance: MYCOPHENOLIC ACID
     Indication: IMMUNOSUPPRESSION
  5. SULFAMETHOXAZOLE/TRIMETHOPRIM [Concomitant]
     Dosage: 80/400
  6. TEICOPLANIN [Concomitant]
     Active Substance: TEICOPLANIN
     Route: 042
  7. MEROPENEM. [Concomitant]
     Active Substance: MEROPENEM
     Route: 042
  8. INSULIN [Concomitant]
     Active Substance: INSULIN NOS
  9. VALGANCICLOVIR/VALGANCICLOVIR HYDROCHLORIDE [Concomitant]
  10. VORICONAZOLE. [Concomitant]
     Active Substance: VORICONAZOLE
     Route: 042

REACTIONS (4)
  - Drug level increased [Recovering/Resolving]
  - Hyperkalaemia [Recovered/Resolved]
  - Klebsiella infection [Unknown]
  - Respiratory failure [Unknown]
